FAERS Safety Report 4879647-4 (Version None)
Quarter: 2006Q1

REPORT INFORMATION
  Report Type: 
  Country: None (occurrence: None)
  Receive Date: 20060111
  Receipt Date: 20051223
  Transmission Date: 20060701
  Serious: Yes (Hospitalization)
  Sender: FDA-Public Use
  Company Number: IT200512003996

PATIENT
  Age: 65 Year
  Sex: Male

DRUGS (4)
  1. HUMULIN NPH (HUMAN INSULIN (RDNA ORIGIN) [Suspect]
     Indication: DIABETES MELLITUS
     Dosage: DAILY (1/D), SUBCUTANEOUS
     Route: 058
     Dates: start: 20050801
  2. HUMAJECT - HUMULIN N (HUMAJECT - HUMULIN N) PEN, DISPOSABLE [Concomitant]
  3. FUROSEMIDE [Concomitant]
  4. WARFARIN SODIUM [Concomitant]

REACTIONS (5)
  - CARDIAC DISORDER [None]
  - DEVICE MALFUNCTION [None]
  - DRUG ADMINISTRATION ERROR [None]
  - HYPOGLYCAEMIA [None]
  - PHARMACEUTICAL PRODUCT COMPLAINT [None]
